FAERS Safety Report 16710313 (Version 9)
Quarter: 2021Q1

REPORT INFORMATION
  Report Type: Spontaneous
  Country: US (occurrence: US)
  Receive Date: 20190816
  Receipt Date: 20210301
  Transmission Date: 20210419
  Serious: Yes (Other)
  Sender: FDA-Public Use
  Company Number: US-PFIZER INC-2019083272

PATIENT
  Age: 59 Year
  Sex: Female
  Weight: 98 kg

DRUGS (7)
  1. LYRICA [Suspect]
     Active Substance: PREGABALIN
     Indication: PAIN
     Dosage: 75 MG, UNK
  2. LYRICA [Suspect]
     Active Substance: PREGABALIN
     Dosage: 150 MG, 2X/DAY (3 CAPSULES PO (ORAL) BID (TWO TIMES IN A DAY))
     Route: 048
  3. LYRICA [Suspect]
     Active Substance: PREGABALIN
     Dosage: 100 MG, 3X/DAY (2 CAPSULES (100 MG TOTAL) BY MOUTH 3 TIMES DAILY)
     Route: 048
  4. LYRICA [Suspect]
     Active Substance: PREGABALIN
     Indication: NEUROPATHY PERIPHERAL
     Dosage: 250 MG, DAILY (50 MG CAPSULE, TAKE 1 CAPSULE BY MOUTH 5 TIMES DAILY)
     Route: 048
  5. LYRICA [Suspect]
     Active Substance: PREGABALIN
     Dosage: 900 MG, DAILY (TAKING 6 PILLS A DAY OF 150MG)
  6. LYRICA [Suspect]
     Active Substance: PREGABALIN
     Dosage: 100 MG (TWO OF 50 MG STRENGTH), 3X/DAY AS DIRECTED BY PHYSICIAN
     Route: 048
     Dates: end: 202003
  7. LYRICA [Suspect]
     Active Substance: PREGABALIN
     Indication: POLYNEUROPATHY
     Dosage: 100 MG, UNK

REACTIONS (28)
  - Prescribed overdose [Unknown]
  - Insomnia [Unknown]
  - Sluggishness [Unknown]
  - Peripheral venous disease [Unknown]
  - Wound [Unknown]
  - Headache [Unknown]
  - Neuropathy peripheral [Unknown]
  - Neuropathic arthropathy [Unknown]
  - Glaucoma [Unknown]
  - Nephropathy [Unknown]
  - Lung disorder [Unknown]
  - Hypoaesthesia [Unknown]
  - Cataract [Unknown]
  - Therapeutic response unexpected [Unknown]
  - Muscle spasms [Unknown]
  - Bone disorder [Unknown]
  - Visual impairment [Unknown]
  - Foot deformity [Unknown]
  - Intraocular pressure increased [Unknown]
  - Immune system disorder [Unknown]
  - Blood pressure decreased [Unknown]
  - Hypoglycaemia [Unknown]
  - Condition aggravated [Unknown]
  - Drug ineffective [Unknown]
  - Weight increased [Unknown]
  - Poor peripheral circulation [Unknown]
  - Peripheral swelling [Unknown]
  - Pain in extremity [Unknown]
